FAERS Safety Report 4967441-5 (Version None)
Quarter: 2006Q2

REPORT INFORMATION
  Report Type: 
  Country: None (occurrence: None)
  Receive Date: 20060404
  Receipt Date: 20060322
  Transmission Date: 20061013
  Serious: Yes (Other)
  Sender: FDA-Public Use
  Company Number: 223472

PATIENT
  Age: 75 Year
  Sex: Male
  Weight: 50 kg

DRUGS (11)
  1. RITUXAN [Suspect]
     Indication: LYMPHOMA
     Dosage: 550 MG, INTRAVENOUS
     Route: 042
     Dates: start: 20040922, end: 20050427
  2. ENDOXAN (CYCLOPHOSPHAMIDE) [Suspect]
     Indication: LYMPHOMA
     Dosage: 950 MG, 1/MONTH, INTRAVENOUS
     Route: 042
     Dates: start: 20040924, end: 20050121
  3. ONCOVIN [Suspect]
     Indication: LYMPHOMA
     Dosage: 1.4 MG, INTRAVENOUS
     Route: 042
     Dates: start: 20040924, end: 20050121
  4. PREDONINE (PREDNISOLONE, PREDNISOLONE ACETATE, PREDNISOLONE SODIUM SUC [Suspect]
     Indication: LYMPHOMA
     Dosage: 60 MG, INTRAVENOUS
     Route: 042
     Dates: start: 20040924, end: 20050121
  5. PIRARUBICIN (PIRARUBICIN) [Suspect]
     Indication: LYMPHOMA
     Dosage: 58 MG, INTRAVENOUS
     Route: 042
     Dates: start: 20040924, end: 20050121
  6. IBUPROFEN [Concomitant]
  7. HYDROXYZINE PAMOATE [Concomitant]
  8. HYDROCORTISONE SODIUM SUCCINATE [Concomitant]
  9. ZOLPIDEM TARTRATE [Concomitant]
  10. RANITIDINE (RANTIDINE) [Concomitant]
  11. ONDANSETRON [Concomitant]

REACTIONS (8)
  - ALANINE AMINOTRANSFERASE INCREASED [None]
  - ASPARTATE AMINOTRANSFERASE INCREASED [None]
  - BLOOD ALKALINE PHOSPHATASE INCREASED [None]
  - BLOOD LACTATE DEHYDROGENASE INCREASED [None]
  - C-REACTIVE PROTEIN INCREASED [None]
  - HEPATIC FUNCTION ABNORMAL [None]
  - PNEUMOCYSTIS JIROVECI PNEUMONIA [None]
  - WHITE BLOOD CELL COUNT DECREASED [None]
